FAERS Safety Report 10977526 (Version 1)
Quarter: 2015Q1

REPORT INFORMATION
  Report Type: Spontaneous
  Country: RS (occurrence: None)
  Receive Date: 20150330
  Receipt Date: 20150330
  Transmission Date: 20150721
  Serious: Yes (Life-Threatening, Hospitalization)
  Sender: FDA-Public Use
  Company Number: POI0581201500007

PATIENT
  Age: 53 Year
  Sex: Female

DRUGS (1)
  1. AZATHIOPRINE (AZATHIOPRINE) [Suspect]
     Active Substance: AZATHIOPRINE
     Indication: MULTIPLE SCLEROSIS
     Dates: start: 2004, end: 2007

REACTIONS (4)
  - Malignant melanoma [None]
  - Invasive lobular breast carcinoma [None]
  - Medullary thyroid cancer [None]
  - Papillary thyroid cancer [None]

NARRATIVE: CASE EVENT DATE: 2007
